FAERS Safety Report 7669878-2 (Version None)
Quarter: 2011Q3

REPORT INFORMATION
  Report Type: 
  Country: None (occurrence: None)
  Receive Date: 20110808
  Receipt Date: 20110803
  Transmission Date: 20111222
  Serious: Yes (Hospitalization)
  Sender: FDA-Public Use
  Company Number: FR-BRISTOL-MYERS SQUIBB COMPANY-15949670

PATIENT
  Age: 64 Year
  Sex: Male

DRUGS (6)
  1. ASPIRIN [Suspect]
     Route: 048
     Dates: start: 20080101, end: 20110101
  2. CELECTOL [Suspect]
     Route: 048
     Dates: start: 20080101, end: 20110101
  3. PIOGLITAZONE HYDROCHLORIDE/METFORMIN HYDROCHLORIDE [Suspect]
     Dosage: 1DF=15MG/850MG
     Route: 048
     Dates: start: 20080131, end: 20110610
  4. REPAGLINIDE [Suspect]
     Route: 048
     Dates: start: 20080731
  5. IRBESARTAN [Suspect]
     Route: 048
     Dates: start: 20080101, end: 20110101
  6. SIMVASTATIN [Suspect]
     Route: 048
     Dates: start: 20080101, end: 20110101

REACTIONS (1)
  - BLADDER NEOPLASM [None]
